FAERS Safety Report 7306904 (Version 3)
Quarter: 2016Q3

REPORT INFORMATION
  Report Type: Report from Study
  Country: CA (occurrence: CA)
  Receive Date: 20100305
  Receipt Date: 20160901
  Transmission Date: 20161109
  Serious: Yes (Hospitalization)
  Sender: FDA-Public Use
  Company Number: CA-PFIZER INC-2008096071

PATIENT
  Age: 69 Year
  Sex: Female
  Weight: 173.5 kg

DRUGS (11)
  1. SENOKOT [Concomitant]
     Active Substance: SENNOSIDES
     Dosage: UNK
     Dates: start: 20070130
  2. CARBOCAL D 400 [Concomitant]
     Dosage: UNK
     Dates: start: 20010921
  3. ASAPHEN [Concomitant]
     Active Substance: ASPIRIN
     Dosage: UNK
     Dates: start: 20040817
  4. CORTISONE [Interacting]
     Active Substance: CORTISONE\HYDROCORTISONE
     Dosage: UNK
     Route: 014
     Dates: start: 20081108, end: 20081108
  5. DETROL LA [Concomitant]
     Active Substance: TOLTERODINE TARTRATE
     Dosage: UNK
     Dates: start: 20080515
  6. NITRO [Concomitant]
     Active Substance: NITROGLYCERIN
     Dosage: UNK
     Dates: start: 2004
  7. NAPROXEN. [Interacting]
     Active Substance: NAPROXEN
     Indication: OSTEOARTHRITIS
  8. NAPROXEN. [Suspect]
     Active Substance: NAPROXEN
     Indication: RHEUMATOID ARTHRITIS
     Dosage: UNK
     Route: 048
     Dates: start: 20081106, end: 20081109
  9. TYLENOL [Concomitant]
     Active Substance: ACETAMINOPHEN
     Dosage: UNK
     Dates: start: 20080102
  10. SUMATRIPTAN SUCCINATE. [Concomitant]
     Active Substance: SUMATRIPTAN SUCCINATE
     Dosage: UNK
     Dates: start: 20030327
  11. NEXIUM [Concomitant]
     Active Substance: ESOMEPRAZOLE MAGNESIUM
     Indication: OSTEOARTHRITIS
     Dosage: UNK
     Dates: start: 20081106

REACTIONS (3)
  - Drug interaction [Recovered/Resolved]
  - Colitis ischaemic [Recovered/Resolved]
  - Diarrhoea [Recovered/Resolved]

NARRATIVE: CASE EVENT DATE: 20081108
